FAERS Safety Report 10363423 (Version 2)
Quarter: 2014Q3

REPORT INFORMATION
  Report Type: Spontaneous
  Country: US (occurrence: US)
  Receive Date: 20140805
  Receipt Date: 20140820
  Transmission Date: 20150326
  Serious: Yes (Other)
  Sender: FDA-Public Use
  Company Number: US-JNJFOC-20140720508

PATIENT
  Sex: Male

DRUGS (1)
  1. LEVAQUIN [Suspect]
     Active Substance: LEVOFLOXACIN
     Indication: LIGAMENT SPRAIN
     Dosage: 4-5 DAYS
     Route: 042
     Dates: start: 2010

REACTIONS (2)
  - Cardiac disorder [Unknown]
  - Tendon injury [Unknown]
